FAERS Safety Report 8237100-4 (Version None)
Quarter: 2012Q1

REPORT INFORMATION
  Report Type: 
  Country: None (occurrence: None)
  Receive Date: 20120327
  Receipt Date: 20120321
  Transmission Date: 20120608
  Serious: Yes (Death, Other)
  Sender: FDA-Public Use
  Company Number: JP-SANOFI-AVENTIS-2012SA012677

PATIENT
  Age: 73 Year
  Sex: Male

DRUGS (12)
  1. PROTON PUMP INHIBITORS [Concomitant]
  2. LANSOPRAZOLE [Concomitant]
     Route: 048
     Dates: start: 20120118, end: 20120209
  3. LASIX [Concomitant]
     Route: 048
     Dates: start: 20120127, end: 20120209
  4. PLAVIX [Suspect]
     Indication: ACUTE MYOCARDIAL INFARCTION
     Route: 048
     Dates: start: 20120118, end: 20120118
  5. CEFAZOLIN [Concomitant]
  6. PLAVIX [Suspect]
     Route: 048
     Dates: start: 20120118, end: 20120118
  7. PLAVIX [Suspect]
     Route: 048
     Dates: start: 20120119, end: 20120131
  8. NIKORANMART [Concomitant]
     Route: 048
     Dates: start: 20120120, end: 20120209
  9. ASPIRIN [Concomitant]
     Route: 048
     Dates: start: 20120118, end: 20120209
  10. ALL OTHER THERAPEUTIC PRODUCTS [Concomitant]
     Dosage: DOSE: 100ML/HOURFREQUENCY: CONTINOUS
     Route: 042
     Dates: start: 20120118
  11. PLAVIX [Suspect]
     Route: 048
     Dates: start: 20120119, end: 20120131
  12. ASPIRIN [Concomitant]
     Indication: ACUTE MYOCARDIAL INFARCTION
     Route: 048
     Dates: start: 20120118, end: 20120209

REACTIONS (3)
  - LIVER INJURY [None]
  - COMA [None]
  - JAUNDICE [None]
